FAERS Safety Report 13280719 (Version 1)
Quarter: 2017Q1

REPORT INFORMATION
  Report Type: Spontaneous
  Country: US (occurrence: US)
  Receive Date: 20170301
  Receipt Date: 20170301
  Transmission Date: 20170428
  Serious: Yes (Hospitalization)
  Sender: FDA-Public Use
  Company Number: US-ASTRAZENECA-2017SE20177

PATIENT
  Age: 678 Month
  Sex: Male
  Weight: 81.2 kg

DRUGS (3)
  1. BUDESONIDE. [Suspect]
     Active Substance: BUDESONIDE
     Indication: CHRONIC OBSTRUCTIVE PULMONARY DISEASE
     Dosage: 0.5MG TWO TIMES A DAY
     Route: 065
     Dates: start: 20150706
  2. SPIRIVA [Concomitant]
     Active Substance: TIOTROPIUM BROMIDE MONOHYDRATE
  3. SYMBICORT [Suspect]
     Active Substance: BUDESONIDE\FORMOTEROL FUMARATE DIHYDRATE
     Indication: CHRONIC OBSTRUCTIVE PULMONARY DISEASE
     Dosage: 160/4.5MCG 2 PUFFS ,TWO TIMES A DAY
     Route: 055
     Dates: start: 201506

REACTIONS (9)
  - Alpha 1 globulin abnormal [Unknown]
  - Product quality issue [Unknown]
  - Off label use [Unknown]
  - Pulmonary air leakage [Unknown]
  - Intentional product misuse [Unknown]
  - Product use issue [Unknown]
  - Choking [Unknown]
  - Drug ineffective [Unknown]
  - Pneumonia [Unknown]

NARRATIVE: CASE EVENT DATE: 201507
